FAERS Safety Report 24656766 (Version 1)
Quarter: 2024Q4

REPORT INFORMATION
  Report Type: Spontaneous
  Country: GB (occurrence: GB)
  Receive Date: 20241125
  Receipt Date: 20241125
  Transmission Date: 20250115
  Serious: Yes (Other)
  Sender: ORGANON
  Company Number: None

PATIENT
  Age: 84 Year
  Sex: Female
  Weight: 66 kg

DRUGS (15)
  1. SINGULAIR [Suspect]
     Active Substance: MONTELUKAST SODIUM
     Dosage: 10MG TABLETS, TAKE ONE AT NIGHT
     Dates: start: 20231212
  2. ISOSORBIDE MONONITRATE [Concomitant]
     Active Substance: ISOSORBIDE MONONITRATE
     Indication: Ill-defined disorder
     Dosage: ONE TO BE TAKEN IN THE MORNING AND AT LUNCH TIME
     Dates: start: 20241011
  3. CAPECITABINE [Concomitant]
     Active Substance: CAPECITABINE
     Indication: Ill-defined disorder
     Dosage: STARTED CHEMOTHERAPY
     Dates: start: 20240923
  4. KENALOG [Concomitant]
     Active Substance: TRIAMCINOLONE ACETONIDE
     Indication: Ill-defined disorder
     Dosage: USE AS DIRECTED
     Dates: start: 20241107, end: 20241108
  5. LIDOCAINE [Concomitant]
     Active Substance: LIDOCAINE
     Indication: Ill-defined disorder
     Dosage: USE AS DIRECTED
     Dates: start: 20241107, end: 20241108
  6. CALCIUM CARBONATE [Concomitant]
     Active Substance: CALCIUM CARBONATE
     Indication: Ill-defined disorder
     Dosage: TAKE TWO IN THE MORNING AND TWO IN THE EVENING
     Dates: start: 20231212
  7. EZETIMIBE [Concomitant]
     Active Substance: EZETIMIBE
     Indication: Ill-defined disorder
     Dosage: ONE TO BE TAKEN EACH MORNING FOR LOWERING CHOLESTEROL
     Dates: start: 20231212
  8. NEXIUM [Concomitant]
     Active Substance: ESOMEPRAZOLE MAGNESIUM
     Indication: Ill-defined disorder
     Dosage: ONE TO BE TAKEN TWICE A DAY (MORN AND EVENING)
     Dates: start: 20231212
  9. XARELTO [Concomitant]
     Active Substance: RIVAROXABAN
     Indication: Ill-defined disorder
     Dosage: ONE TO BE TAKEN EACH DAY MUST TAKE WITH OR AFTER
     Dates: start: 20231212, end: 20240923
  10. VENTOLIN [Concomitant]
     Active Substance: ALBUTEROL SULFATE
     Indication: Ill-defined disorder
     Dosage: ONLY ONE DOSE TO BE INHALED UP TO FOUR TIMES A
     Dates: start: 20240103
  11. BECLOMETHASONE DIPROPIONATE\FORMOTEROL FUMARATE\GLYCOPYRROLATE [Concomitant]
     Active Substance: BECLOMETHASONE DIPROPIONATE\FORMOTEROL FUMARATE\GLYCOPYRROLATE
     Indication: Ill-defined disorder
     Dosage: TWO PUFFS TO BE INHALED TWICE A DAY (THIS REPLACE)
     Dates: start: 20240115
  12. CLARITHROMYCIN [Concomitant]
     Active Substance: CLARITHROMYCIN
     Indication: Ill-defined disorder
     Dosage: ONE TO BE TAKEN TWICE A DAY - SPACE DOSE EVERY ...
     Dates: start: 20240411
  13. PREDNISOLONE [Concomitant]
     Active Substance: PREDNISOLONE
     Indication: Ill-defined disorder
     Dosage: SIX TO BE TAKEN EACH DAY
     Dates: start: 20240411
  14. SODIUM ALGINATE [Concomitant]
     Active Substance: SODIUM ALGINATE
     Indication: Ill-defined disorder
     Dosage: 5ML -4 TIMES/DAY AS REQUIRED
     Dates: start: 20240530
  15. ELIQUIS [Concomitant]
     Active Substance: APIXABAN
     Indication: Ill-defined disorder
     Dosage: 1 TO BE TAKEN TWICE DAILY (MORNING AND EVENING)
     Dates: start: 20240923

REACTIONS (2)
  - Tongue discolouration [Recovering/Resolving]
  - Dry mouth [Unknown]
